FAERS Safety Report 20679621 (Version 1)
Quarter: 2022Q2

REPORT INFORMATION
  Report Type: Spontaneous
  Country: US (occurrence: None)
  Receive Date: 20220405
  Receipt Date: 20220405
  Transmission Date: 20220721
  Serious: Yes (Hospitalization)
  Sender: FDA-Public Use
  Company Number: None

PATIENT
  Age: 67 Year
  Sex: Female
  Weight: 61.2 kg

DRUGS (2)
  1. PAXLOVID [Suspect]
     Active Substance: NIRMATRELVIR\RITONAVIR
     Indication: COVID-19
     Dates: start: 20220328, end: 20220330
  2. Valsartan 80 mg daily [Concomitant]

REACTIONS (4)
  - Headache [None]
  - Blood pressure increased [None]
  - Diarrhoea [None]
  - Hyponatraemia [None]

NARRATIVE: CASE EVENT DATE: 20220401
